FAERS Safety Report 9167310 (Version 3)
Quarter: 2013Q2

REPORT INFORMATION
  Report Type: Spontaneous
  Country: US (occurrence: None)
  Receive Date: 20130228
  Receipt Date: 20130524
  Transmission Date: 20140414
  Serious: Yes (Hospitalization)
  Sender: FDA-Public Use
  Company Number: 2013-034

PATIENT
  Age: 55 Year
  Sex: Female
  Weight: 63.5 kg

DRUGS (18)
  1. PRIALT [Suspect]
     Dosage: UNK MCG, ONCE/HOUR, INTRATHECAL
     Route: 037
  2. PRIALT [Suspect]
     Dosage: UNK MCG, ONCE/HOUR, INTRATHECAL
     Route: 037
  3. PRIALT [Suspect]
     Dosage: UNK MCG, ONCE/HOUR, INTRATHECAL
     Route: 037
  4. PRIALT [Suspect]
     Dosage: UNK MCG, ONCE/HOUR, INTRATHECAL
     Route: 037
  5. PRIALT [Suspect]
     Dosage: UNK MCG, ONCE/HOUR, INTRATHECAL
     Route: 037
  6. PRIALT [Suspect]
     Dosage: UNK MCG, ONCE/HOUR, INTRATHECAL
     Route: 037
  7. PRIALT [Suspect]
     Dosage: UNK MCG, ONCE/HOUR, INTRATHECAL
     Route: 037
  8. DILAUDID (HYDROMORPHONE HYDROCHLORIDE) INJECTION [Suspect]
     Indication: PAIN
     Dosage: 0.52 MG, ONCE/HOUR, INTRATHECAL
     Route: 037
  9. DILAUDID (HYDROMORPHONE HYDROCHLORIDE) INJECTION [Suspect]
     Indication: PAIN
     Dosage: 0.52 MG, ONCE/HOUR, INTRATHECAL
     Route: 037
  10. DILAUDID (HYDROMORPHONE HYDROCHLORIDE) INJECTION [Suspect]
     Dosage: 0.52 MG, ONCE/HOUR, INTRATHECAL
     Route: 037
  11. DILAUDID (HYDROMORPHONE HYDROCHLORIDE) INJECTION [Suspect]
     Dosage: 0.52 MG, ONCE/HOUR, INTRATHECAL
     Route: 037
  12. DILAUDID (HYDROMORPHONE HYDROCHLORIDE) INJECTION [Suspect]
     Dosage: 0.52 MG, ONCE/HOUR, INTRATHECAL
     Route: 037
  13. DILAUDID (HYDROMORPHONE HYDROCHLORIDE) INJECTION [Suspect]
     Dosage: 0.52 MG, ONCE/HOUR, INTRATHECAL
     Route: 037
  14. OXYCODONE [Concomitant]
  15. XYREM [Suspect]
     Dosage: INTRATHECAL?2250 MG, QD, NIGHTLY, ORAL?
     Route: 048
     Dates: start: 201302, end: 201305
  16. XYREM [Suspect]
     Dosage: INTRATHECAL?2250 MG, QD, NIGHTLY, ORAL?
     Route: 048
     Dates: start: 201302, end: 201305
  17. NUVIGIL (ARMODAFINIL) [Concomitant]
  18. DETROL LA (TOLTERODINE I-TARTRATE) [Concomitant]

REACTIONS (8)
  - Renal failure [None]
  - Pneumonia [None]
  - Unresponsive to stimuli [None]
  - Malaise [None]
  - Pneumonitis [None]
  - Respiratory distress [None]
  - Sepsis [None]
  - Weight decreased [None]
